FAERS Safety Report 7871472-5 (Version None)
Quarter: 2011Q4

REPORT INFORMATION
  Report Type: 
  Country: None (occurrence: None)
  Receive Date: 20111029
  Receipt Date: 20110302
  Transmission Date: 20120403
  Serious: No
  Sender: FDA-Public Use
  Company Number: US-AMGEN-USASP2011011924

PATIENT
  Age: 62 Year
  Sex: Female

DRUGS (2)
  1. ENBREL [Suspect]
     Indication: RHEUMATOID ARTHRITIS
     Dosage: 50 MG, QWK
     Dates: start: 19990101
  2. INFLUENZA VACCINE [Concomitant]

REACTIONS (6)
  - NASAL CONGESTION [None]
  - PAIN IN EXTREMITY [None]
  - FEELING HOT [None]
  - TONSILLAR HYPERTROPHY [None]
  - MALAISE [None]
  - ORAL PUSTULE [None]
